FAERS Safety Report 7538767-6 (Version None)
Quarter: 2011Q2

REPORT INFORMATION
  Report Type: 
  Country: None (occurrence: None)
  Receive Date: 20110610
  Receipt Date: 20091113
  Transmission Date: 20111010
  Serious: Yes (Death, Hospitalization, Other)
  Sender: FDA-Public Use
  Company Number: US-BAYER-200939671NA

PATIENT
  Age: 78 Year
  Sex: Male
  Weight: 93 kg

DRUGS (16)
  1. PROTONIX [Concomitant]
     Dosage: 40 MG, QD
     Route: 048
  2. NITROGLYCERIN [Concomitant]
     Dosage: UNK
     Route: 042
     Dates: start: 20030319
  3. TRASYLOL [Suspect]
     Indication: CORONARY ARTERY BYPASS
     Dosage: 1 ML, ONCE, TEST DOSE
     Route: 042
     Dates: start: 20030319, end: 20030319
  4. OPTIRAY 160 [Concomitant]
     Dosage: 50 ML, UNK
     Dates: start: 20030318
  5. HEPARIN [Concomitant]
     Dosage: UNK
     Route: 042
     Dates: start: 20030319
  6. MAVIK [Concomitant]
     Route: 048
  7. LIDOCAINE [Concomitant]
     Dosage: UNK
     Route: 042
     Dates: start: 20030319
  8. PAVULON [Concomitant]
     Dosage: UNK
     Route: 042
     Dates: start: 20030319
  9. ATIVAN [Concomitant]
     Dosage: UNK
     Route: 042
     Dates: start: 20030319
  10. TRASYLOL [Suspect]
     Dosage: 200 ML, ONCE, LOADING DOSE
     Route: 042
     Dates: start: 20030319, end: 20030319
  11. TRASYLOL [Suspect]
     Dosage: 50 ML, Q1HR, INFUSION
     Route: 042
     Dates: start: 20030319, end: 20030319
  12. CARDURA [Concomitant]
     Dosage: 8 MG, QD
     Route: 048
  13. MANNITOL [Concomitant]
     Dosage: UNK
     Route: 042
     Dates: start: 20030319
  14. DOBUTAMINE HYDROCHLORIDE [Concomitant]
     Dosage: UNK
     Route: 042
  15. PROTAMINE SULFATE [Concomitant]
     Dosage: UNK
     Route: 042
     Dates: start: 20030319
  16. ZOLOFT [Concomitant]
     Dosage: 50 MG, QD
     Route: 048

REACTIONS (13)
  - EMOTIONAL DISTRESS [None]
  - STRESS [None]
  - RENAL IMPAIRMENT [None]
  - INJURY [None]
  - ANXIETY [None]
  - UNEVALUABLE EVENT [None]
  - PAIN [None]
  - ANHEDONIA [None]
  - RENAL FAILURE [None]
  - DEATH [None]
  - MULTI-ORGAN FAILURE [None]
  - RENAL INJURY [None]
  - FEAR [None]
